FAERS Safety Report 6771148-1 (Version None)
Quarter: 2010Q2

REPORT INFORMATION
  Report Type: 
  Country: None (occurrence: None)
  Receive Date: 20100614
  Receipt Date: 20100614
  Transmission Date: 20101027
  Serious: Yes (Hospitalization)
  Sender: FDA-Public Use
  Company Number: None

PATIENT
  Sex: Male
  Weight: 99.7913 kg

DRUGS (1)
  1. SIMVASTATIN [Suspect]
     Indication: BLOOD CHOLESTEROL
     Dosage: 40 MG NORMAL 1 40 MG DAILY BY MOUTH
     Dates: start: 20100130

REACTIONS (3)
  - DYSPNOEA [None]
  - MUSCULOSKELETAL PAIN [None]
  - PAIN [None]
